FAERS Safety Report 9661830 (Version 2)
Quarter: 2014Q1

REPORT INFORMATION
  Report Type: Spontaneous
  Country: GB (occurrence: None)
  Receive Date: 20131030
  Receipt Date: 20140318
  Transmission Date: 20141002
  Serious: Yes (Hospitalization)
  Sender: FDA-Public Use
  Company Number: SYM-2013-11966

PATIENT
  Age: 8 Year
  Sex: Female

DRUGS (6)
  1. METRONIDAZOLE [Suspect]
     Indication: DIARRHOEA HAEMORRHAGIC
     Dosage: 300 MG, 3 IN 1 D, INTRAVENOUS (NOT OTHERWISE SPECIFIED)
     Route: 042
     Dates: start: 20130926, end: 20130930
  2. CEFOTAXIME [Concomitant]
  3. PARACETAMOL [Concomitant]
  4. ONDANSETRON [Concomitant]
  5. CODEINE PHOSPHATE [Concomitant]
  6. BUSCOPAN [Concomitant]

REACTIONS (2)
  - Haemolytic uraemic syndrome [None]
  - Intravascular haemolysis [None]
